FAERS Safety Report 17023579 (Version 1)
Quarter: 2019Q4

REPORT INFORMATION
  Report Type: Spontaneous
  Country: US (occurrence: US)
  Receive Date: 20191113
  Receipt Date: 20191113
  Transmission Date: 20200122
  Serious: No
  Sender: FDA-Public Use
  Company Number: US-LUPIN PHARMACEUTICALS INC.-2019-06218

PATIENT
  Age: 58 Year
  Sex: Female
  Weight: 77.1 kg

DRUGS (1)
  1. LEVOTHYROXINE SODIUM TABLETS USP, 88 MCG [Suspect]
     Active Substance: LEVOTHYROXINE SODIUM
     Indication: THYROID DISORDER
     Dosage: 88 MICROGRAM, QD (PHARMACY BOTTLE)
     Route: 048
     Dates: start: 201908, end: 20190912

REACTIONS (5)
  - Weight increased [Recovering/Resolving]
  - Lethargy [Recovered/Resolved]
  - Palpitations [Recovered/Resolved]
  - Feeling abnormal [Recovered/Resolved]
  - Drug ineffective [Unknown]

NARRATIVE: CASE EVENT DATE: 201908
